FAERS Safety Report 18300377 (Version 1)
Quarter: 2020Q3

REPORT INFORMATION
  Report Type: Spontaneous
  Country: US (occurrence: US)
  Receive Date: 20200923
  Receipt Date: 20200923
  Transmission Date: 20201103
  Serious: No
  Sender: FDA-Public Use
  Company Number: None

PATIENT
  Age: 55 Year
  Sex: Female
  Weight: 104.33 kg

DRUGS (1)
  1. CIPROFLOXACIN/DEXTROSE (CIPROFLOXACIN 2MG/ML/DEXTROSE 5% INJ) [Suspect]
     Active Substance: CIPROFLOXACIN HYDROCHLORIDE\DEXAMETHASONE
     Dosage: ?          OTHER ROUTE:IV?
     Route: 042
     Dates: start: 20200616, end: 20200617

REACTIONS (2)
  - Blister [None]
  - Rash [None]

NARRATIVE: CASE EVENT DATE: 20200617
